FAERS Safety Report 8018022-0 (Version None)
Quarter: 2012Q1

REPORT INFORMATION
  Report Type: 
  Country: None (occurrence: None)
  Receive Date: 20120103
  Receipt Date: 20111230
  Transmission Date: 20120608
  Serious: Yes (Other)
  Sender: FDA-Public Use
  Company Number: FI-JNJFOC-20120100136

PATIENT
  Age: 42 Year
  Sex: Male

DRUGS (12)
  1. SULFASALAZINE [Concomitant]
     Route: 065
  2. RISPERDAL [Suspect]
     Indication: BIPOLAR DISORDER
     Route: 048
  3. LYRICA [Concomitant]
     Route: 065
  4. RISPERDAL CONSTA [Suspect]
     Route: 030
     Dates: start: 20111207, end: 20111207
  5. ASPIRIN [Concomitant]
     Route: 065
  6. MAGNESIUM [Concomitant]
     Route: 065
  7. AMITRIPTYLINE HCL [Concomitant]
     Route: 065
  8. RISPERDAL CONSTA [Suspect]
     Indication: BIPOLAR DISORDER
     Route: 030
     Dates: start: 20111123, end: 20111207
  9. PANTOPRAZOLE [Concomitant]
     Route: 065
  10. VITAMIN D [Concomitant]
     Route: 065
  11. RISPERDAL [Suspect]
     Route: 048
     Dates: start: 20111114
  12. LYRICA [Concomitant]
     Route: 065

REACTIONS (2)
  - HALLUCINATION [None]
  - NIGHTMARE [None]
